FAERS Safety Report 19188649 (Version 1)
Quarter: 2021Q2

REPORT INFORMATION
  Report Type: Other
  Country: None (occurrence: US)
  Receive Date: 20210427
  Receipt Date: 20210427
  Transmission Date: 20210717
  Serious: Yes (Death)
  Sender: FDA-Public Use
  Company Number: US-B.BRAUN MEDICAL INC.-2109870

PATIENT
  Age: 65 Year
  Sex: Female

DRUGS (3)
  1. HIGH DOSE INSULIN [Concomitant]
     Active Substance: INSULIN NOS
  2. NUTRILIPID I.V. FAT EMULSION [Suspect]
     Active Substance: SOYBEAN OIL
     Indication: TOXICITY TO VARIOUS AGENTS
  3. DEXTROSE. [Concomitant]
     Active Substance: DEXTROSE

REACTIONS (4)
  - Overdose [None]
  - Hypertriglyceridaemia [None]
  - Unresponsive to stimuli [None]
  - Medication error [None]
